FAERS Safety Report 23919648 (Version 2)
Quarter: 2024Q3

REPORT INFORMATION
  Report Type: Spontaneous
  Country: CA (occurrence: CA)
  Receive Date: 20240530
  Receipt Date: 20240830
  Transmission Date: 20241016
  Serious: No
  Sender: PFIZER
  Company Number: CA-PFIZER INC-PV202400069973

PATIENT
  Age: 55 Year
  Sex: Female

DRUGS (2)
  1. ESTRING [Suspect]
     Active Substance: ESTRADIOL
     Dosage: UNK
     Dates: start: 202301
  2. ESTRADIOL [Concomitant]
     Active Substance: ESTRADIOL

REACTIONS (4)
  - Vulvovaginal discomfort [Recovered/Resolved]
  - Device colour issue [Not Recovered/Not Resolved]
  - Device issue [Not Recovered/Not Resolved]
  - Atrophic vulvovaginitis [Unknown]
